FAERS Safety Report 13590476 (Version 2)
Quarter: 2017Q3

REPORT INFORMATION
  Report Type: Spontaneous
  Country: US (occurrence: US)
  Receive Date: 20170529
  Receipt Date: 20170721
  Transmission Date: 20171127
  Serious: No
  Sender: FDA-Public Use
  Company Number: US-JNJFOC-20170522006

PATIENT
  Sex: Female
  Weight: 99.34 kg

DRUGS (8)
  1. LUMIGAN [Concomitant]
     Active Substance: BIMATOPROST
     Indication: BLINDNESS
     Dosage: ONE DROP IN EACH EYE EVERY MORNING, FOR 10 YEARS OR MORE
     Route: 065
  2. LIDODERM [Concomitant]
     Active Substance: LIDOCAINE
     Route: 065
  3. CELEBREX [Concomitant]
     Active Substance: CELECOXIB
     Indication: PAIN
     Route: 048
  4. CELEBREX [Concomitant]
     Active Substance: CELECOXIB
     Indication: PAIN
     Dosage: ONE TO TWO TABLETS ON AS NEEDED BASIS
     Route: 048
  5. TRAMADOL HYDROCHLORIDE. [Suspect]
     Active Substance: TRAMADOL HYDROCHLORIDE
     Indication: PAIN
     Route: 065
  6. TYLENOL ARTHRITIS PAIN [Suspect]
     Active Substance: ACETAMINOPHEN
     Indication: ARTHRALGIA
     Route: 065
  7. TIMOLOL. [Concomitant]
     Active Substance: TIMOLOL
     Indication: BLINDNESS
     Dosage: ONE DROP IN EACH EYE EVERY MORNING, USING FOR 10 OR MORE YEARS
     Route: 065
  8. CELEBREX [Concomitant]
     Active Substance: CELECOXIB
     Indication: PAIN
     Route: 048

REACTIONS (1)
  - Drug ineffective [Unknown]
